FAERS Safety Report 26191918 (Version 1)
Quarter: 2025Q4

REPORT INFORMATION
  Report Type: Spontaneous
  Country: GB (occurrence: GB)
  Receive Date: 20251223
  Receipt Date: 20251223
  Transmission Date: 20260117
  Serious: Yes (Other)
  Sender: LEO PHARM
  Company Number: GB-LEO Pharma-385259

PATIENT
  Age: 28 Year
  Sex: Female

DRUGS (1)
  1. ADBRY [Suspect]
     Active Substance: TRALOKINUMAB-LDRM
     Indication: Dermatitis atopic

REACTIONS (3)
  - Synovitis [Recovered/Resolved]
  - Tenosynovitis [Recovered/Resolved]
  - Psoriatic arthropathy [Recovered/Resolved]
